FAERS Safety Report 15888358 (Version 2)
Quarter: 2019Q1

REPORT INFORMATION
  Report Type: Spontaneous
  Country: FR (occurrence: FR)
  Receive Date: 20190130
  Receipt Date: 20190306
  Transmission Date: 20190417
  Serious: Yes (Death, Hospitalization)
  Sender: FDA-Public Use
  Company Number: FR-ACCORD-104240

PATIENT
  Age: 93 Year
  Sex: Female

DRUGS (11)
  1. BACTRIM [Suspect]
     Active Substance: SULFAMETHOXAZOLE\TRIMETHOPRIM
     Indication: PRODUCT USED FOR UNKNOWN INDICATION
     Dosage: UNK
     Route: 048
     Dates: start: 20150909, end: 20150918
  2. DEBRIDAT [Concomitant]
     Active Substance: TRIMEBUTINE MALEATE
  3. ULTRAVIST [Suspect]
     Active Substance: IOPROMIDE
     Indication: COMPUTERISED TOMOGRAM
     Dosage: 27 GRAMMES, 27 G, UNK
     Route: 042
     Dates: start: 20150905, end: 20150905
  4. COVERSYL [Suspect]
     Active Substance: PERINDOPRIL
     Dosage: 5 MG, QD
     Route: 048
     Dates: end: 20150918
  5. FUROSEMIDE. [Suspect]
     Active Substance: FUROSEMIDE
     Indication: PRODUCT USED FOR UNKNOWN INDICATION
     Dosage: 40 MG / DAY, 40 MG, QD
     Route: 048
     Dates: end: 20150919
  6. FORLAX [Concomitant]
     Active Substance: POLYETHYLENE GLYCOL 4000
  7. TAHOR [Concomitant]
     Active Substance: ATORVASTATIN CALCIUM
  8. LEXOMIL [Concomitant]
     Active Substance: BROMAZEPAM
  9. TEMERIT [Concomitant]
     Active Substance: NEBIVOLOL
  10. PREVISCAN (FLUINDIONE) [Suspect]
     Active Substance: FLUINDIONE
     Indication: PRODUCT USED FOR UNKNOWN INDICATION
     Dosage: 1 / DAY, 20 MG, QD
     Route: 048
     Dates: end: 20150919
  11. LERCAN [Concomitant]
     Active Substance: LERCANIDIPINE

REACTIONS (3)
  - Neoplasm malignant [Fatal]
  - General physical health deterioration [None]
  - Acute kidney injury [Recovered/Resolved]

NARRATIVE: CASE EVENT DATE: 20150919
